FAERS Safety Report 13865954 (Version 1)
Quarter: 2017Q3

REPORT INFORMATION
  Report Type: Spontaneous
  Country: US (occurrence: US)
  Receive Date: 20170814
  Receipt Date: 20170814
  Transmission Date: 20171127
  Serious: No
  Sender: FDA-Public Use
  Company Number: US-MALLINCKRODT-T201602908

PATIENT
  Sex: Male
  Weight: 100 kg

DRUGS (2)
  1. OXYCODONE [Concomitant]
     Active Substance: OXYCODONE
     Dosage: 30 MG TABLETS
  2. MORPHINE [Suspect]
     Active Substance: MORPHINE
     Indication: PAIN
     Dosage: 100 MG, TWICE DAILY
     Route: 048
     Dates: start: 201604

REACTIONS (2)
  - Therapy cessation [Recovered/Resolved]
  - Drug ineffective [Not Recovered/Not Resolved]
